FAERS Safety Report 7786749-1 (Version None)
Quarter: 2011Q3

REPORT INFORMATION
  Report Type: 
  Country: None (occurrence: None)
  Receive Date: 20110929
  Receipt Date: 20110921
  Transmission Date: 20111222
  Serious: Yes (Other)
  Sender: FDA-Public Use
  Company Number: US-PFIZER INC-2011223583

PATIENT
  Sex: Female

DRUGS (5)
  1. METFORMIN [Concomitant]
     Indication: DIABETES MELLITUS
     Dosage: UNK
  2. BENICAR HCT [Concomitant]
     Indication: HYPERTENSION
     Dosage: UNK
  3. BYSTOLIC [Concomitant]
     Indication: HYPERTENSION
     Dosage: UNK
  4. LATANOPROST [Suspect]
     Indication: GLAUCOMA
     Dosage: UNK
     Dates: end: 20110921
  5. LATANOPROST [Suspect]
     Dosage: 1 GTT, 1X/DAY
     Dates: start: 20110101, end: 20110921

REACTIONS (1)
  - INTRAOCULAR PRESSURE INCREASED [None]
